FAERS Safety Report 8588826-4 (Version None)
Quarter: 2012Q3

REPORT INFORMATION
  Report Type: 
  Country: None (occurrence: None)
  Receive Date: 20120813
  Receipt Date: 20120803
  Transmission Date: 20120928
  Serious: Yes (Other)
  Sender: FDA-Public Use
  Company Number: US-ASTRAZENECA-2012SE55173

PATIENT
  Age: 74 Year
  Sex: Female

DRUGS (5)
  1. ALBUTEROL [Concomitant]
  2. LASIX [Concomitant]
  3. LIPITOR [Concomitant]
  4. SYMBICORT [Suspect]
     Dosage: 160/4.5 MCG WITH UNKNOWN FREQUENCY
     Route: 055
     Dates: start: 20120608
  5. AMLODIPINE [Concomitant]

REACTIONS (1)
  - VISUAL IMPAIRMENT [None]
